FAERS Safety Report 9036961 (Version 1)
Quarter: 2013Q1

REPORT INFORMATION
  Report Type: Report from Study
  Country: US (occurrence: US)
  Receive Date: 20130129
  Receipt Date: 20130129
  Transmission Date: 20140127
  Serious: No
  Sender: FDA-Public Use
  Company Number: US-ABBOTT-12P-163-0893888-00

PATIENT
  Age: 13 Year
  Sex: Male

DRUGS (3)
  1. HUMIRA 40 MG/0.8 ML PEN [Suspect]
     Indication: CROHN^S DISEASE
     Dosage: LOADING DOSE 2 (40MG) DAY 15
     Dates: start: 20111217, end: 20120101
  2. METHOTREXATE [Concomitant]
     Indication: CROHN^S DISEASE
     Dosage: 8 PILLS TOTAL EVERY WEEK
  3. FOLIC ACID [Concomitant]
     Indication: PRODUCT USED FOR UNKNOWN INDICATION
     Dosage: EVERY DAY

REACTIONS (3)
  - Eye pain [Recovered/Resolved]
  - Dry eye [Recovered/Resolved]
  - Injection site pain [Recovered/Resolved]
